FAERS Safety Report 16818532 (Version 1)
Quarter: 2019Q3

REPORT INFORMATION
  Report Type: Spontaneous
  Country: US (occurrence: US)
  Receive Date: 20190917
  Receipt Date: 20190917
  Transmission Date: 20191005
  Serious: Yes (Hospitalization)
  Sender: FDA-Public Use
  Company Number: US-CELGENEUS-USA-20190904130

PATIENT
  Age: 62 Year
  Sex: Male

DRUGS (53)
  1. ABRAXANE [Suspect]
     Active Substance: PACLITAXEL
     Indication: PANCREATIC CARCINOMA METASTATIC
     Dosage: 125 MILLIGRAM/SQ. METER
     Route: 041
     Dates: start: 20180912, end: 20181227
  2. MEDI4736 (DURVALUMAB) [Concomitant]
     Active Substance: DURVALUMAB
     Dosage: 1500 MILLIGRAM
     Route: 042
     Dates: start: 20190324, end: 20190424
  3. GEMCITABINE. [Concomitant]
     Active Substance: GEMCITABINE
     Dosage: 750 MILLIGRAM/SQ. METER
     Route: 041
     Dates: start: 20190325, end: 20190325
  4. HYDROCODONE [Concomitant]
     Active Substance: HYDROCODONE
     Indication: PELVIC PAIN
     Dosage: 1300 MILLIGRAM
     Route: 048
     Dates: start: 20181221
  5. SIMETHICONE (DIMETHICONE) [Concomitant]
     Active Substance: DIMETHICONE
     Indication: ABDOMINAL DISTENSION
     Dosage: 750 MILLIGRAM
     Route: 048
     Dates: start: 20181214
  6. CETRIZINE [Concomitant]
     Active Substance: CETIRIZINE HYDROCHLORIDE
     Indication: SEASONAL ALLERGY
     Dosage: 10 MILLIGRAM
     Route: 048
     Dates: start: 20181228
  7. OLECLUMAB. [Concomitant]
     Active Substance: OLECLUMAB
     Dosage: 3000 MILLIGRAM
     Route: 042
     Dates: start: 20190325, end: 20190325
  8. OLECLUMAB. [Concomitant]
     Active Substance: OLECLUMAB
     Dosage: 3000 MILLIGRAM
     Route: 042
     Dates: start: 20190826, end: 20190826
  9. ASPIRIN. [Concomitant]
     Active Substance: ASPIRIN
     Indication: SUPPLEMENTATION THERAPY
     Dosage: 81 MILLIGRAM
     Route: 048
     Dates: start: 20120101
  10. ENALAPRIL MALEATE. [Concomitant]
     Active Substance: ENALAPRIL MALEATE
     Indication: HYPERTENSION
     Dosage: 10 MILLIGRAM
     Route: 048
     Dates: start: 20180611
  11. NICODERM CQ [Concomitant]
     Active Substance: NICOTINE
     Indication: SMOKING CESSATION THERAPY
     Dosage: 7 MILLIGRAM
     Route: 048
     Dates: start: 20181101
  12. ONDANSETRON [Concomitant]
     Active Substance: ONDANSETRON
     Indication: NAUSEA
     Dosage: 24 MILLIGRAM
     Route: 048
     Dates: start: 20181212
  13. GEMCITABINE. [Concomitant]
     Active Substance: GEMCITABINE
     Dosage: 750 MILLIGRAM/SQ. METER
     Route: 041
     Dates: start: 20190124, end: 20190124
  14. GEMCITABINE. [Concomitant]
     Active Substance: GEMCITABINE
     Dosage: 750 MILLIGRAM/SQ. METER
     Route: 041
     Dates: start: 20190506, end: 20190506
  15. LIDODERM [Concomitant]
     Active Substance: LIDOCAINE
     Indication: PELVIC PAIN
     Dosage: 5 PERCENT
     Route: 061
     Dates: start: 20181227
  16. ABRAXANE [Suspect]
     Active Substance: PACLITAXEL
     Dosage: 100 MILLIGRAM/SQ. METER
     Route: 041
     Dates: start: 20190408, end: 20190408
  17. ABRAXANE [Suspect]
     Active Substance: PACLITAXEL
     Dosage: 100 MILLIGRAM/SQ. METER
     Route: 041
     Dates: start: 20190424, end: 20190424
  18. OLECLUMAB. [Concomitant]
     Active Substance: OLECLUMAB
     Dosage: 3000 MILLIGRAM
     Route: 042
     Dates: start: 20190221, end: 20190221
  19. MEDI4736 (DURVALUMAB) [Concomitant]
     Active Substance: DURVALUMAB
     Dosage: 1500 MILLIGRAM
     Route: 042
     Dates: start: 20190325, end: 20190325
  20. GEMCITABINE. [Concomitant]
     Active Substance: GEMCITABINE
     Dosage: 750 MILLIGRAM/SQ. METER
     Route: 041
     Dates: start: 20190131, end: 20190131
  21. OLECLUMAB. [Concomitant]
     Active Substance: OLECLUMAB
     Indication: PANCREATIC CARCINOMA METASTATIC
     Dosage: 3000 MILLIGRAM
     Route: 042
     Dates: start: 20181227, end: 20181227
  22. OLECLUMAB. [Concomitant]
     Active Substance: OLECLUMAB
     Dosage: 3000 MILLIGRAM
     Route: 042
     Dates: start: 20190701, end: 20190701
  23. MEDI4736 (DURVALUMAB) [Concomitant]
     Active Substance: DURVALUMAB
     Dosage: 1500 MILLIGRAM
     Route: 042
     Dates: start: 20190124, end: 20190124
  24. GEMCITABINE. [Concomitant]
     Active Substance: GEMCITABINE
     Indication: PANCREATIC CARCINOMA METASTATIC
     Dosage: 1000 MILLIGRAM/SQ. METER
     Route: 041
     Dates: start: 20181227, end: 20181227
  25. GEMCITABINE. [Concomitant]
     Active Substance: GEMCITABINE
     Dosage: 750 MILLIGRAM/SQ. METER
     Route: 041
     Dates: start: 20190221, end: 20190221
  26. GEMCITABINE. [Concomitant]
     Active Substance: GEMCITABINE
     Dosage: 750 MILLIGRAM/SQ. METER
     Route: 041
     Dates: start: 20190228, end: 20190228
  27. AMLODIPINE [Concomitant]
     Active Substance: AMLODIPINE BESYLATE
     Indication: HYPERTENSION
     Dosage: 40 MILLIGRAM
     Route: 048
     Dates: start: 20120101
  28. ATORVASTATIN [Concomitant]
     Active Substance: ATORVASTATIN
     Indication: BLOOD CHOLESTEROL INCREASED
     Dosage: 20 MILLIGRAM
     Route: 048
     Dates: start: 20140101
  29. METOPROLOL TARTRATE. [Concomitant]
     Active Substance: METOPROLOL TARTRATE
     Indication: HYPERTENSION
     Dosage: 50 MILLIGRAM
     Route: 048
     Dates: start: 20181101
  30. POLYETHYLENE GLYCOL [Concomitant]
     Active Substance: POLYETHYLENE GLYCOLS
     Indication: CONSTIPATION
     Dosage: 17 GRAM
     Route: 048
     Dates: start: 20181210
  31. ABRAXANE [Suspect]
     Active Substance: PACLITAXEL
     Dosage: 100 MILLIGRAM/SQ. METER
     Route: 041
     Dates: start: 20190124, end: 20190124
  32. MEDI4736 (DURVALUMAB) [Concomitant]
     Active Substance: DURVALUMAB
     Indication: PANCREATIC CARCINOMA METASTATIC
     Dosage: 1500 MILLIGRAM
     Route: 042
     Dates: start: 20181227, end: 20181227
  33. MEDI4736 (DURVALUMAB) [Concomitant]
     Active Substance: DURVALUMAB
     Dosage: 1500 MILLIGRAM
     Route: 042
     Dates: start: 20190221, end: 20190221
  34. MEDI4736 (DURVALUMAB) [Concomitant]
     Active Substance: DURVALUMAB
     Dosage: 1500 MILLIGRAM
     Route: 042
     Dates: start: 20190826, end: 20190826
  35. ABRAXANE [Suspect]
     Active Substance: PACLITAXEL
     Dosage: 100 MILLIGRAM/SQ. METER
     Route: 041
     Dates: start: 20190131, end: 20190131
  36. ABRAXANE [Suspect]
     Active Substance: PACLITAXEL
     Dosage: 100 MILLIGRAM/SQ. METER
     Route: 041
     Dates: start: 20190325, end: 20190325
  37. ABRAXANE [Suspect]
     Active Substance: PACLITAXEL
     Dosage: 100 MILLIGRAM/SQ. METER
     Route: 041
     Dates: start: 20190506, end: 20190506
  38. OLECLUMAB. [Concomitant]
     Active Substance: OLECLUMAB
     Dosage: 3000 MILLIGRAM
     Route: 042
     Dates: start: 20190424, end: 20190424
  39. GEMCITABINE. [Concomitant]
     Active Substance: GEMCITABINE
     Dosage: 1305 MILLIGRAM/SQ. METER
     Route: 041
     Dates: start: 20190701, end: 20190701
  40. CREON [Concomitant]
     Active Substance: PANCRELIPASE AMYLASE\PANCRELIPASE LIPASE\PANCRELIPASE PROTEASE
     Indication: SUPPLEMENTATION THERAPY
     Dosage: 9600 IU (INTERNATIONAL UNIT)
     Route: 048
     Dates: start: 20181116
  41. ABRAXANE [Suspect]
     Active Substance: PACLITAXEL
     Dosage: 125 MILLIGRAM/SQ. METER
     Route: 041
     Dates: start: 20190103, end: 20190103
  42. ABRAXANE [Suspect]
     Active Substance: PACLITAXEL
     Dosage: 100 MILLIGRAM/SQ. METER
     Route: 041
     Dates: start: 20190221, end: 20190221
  43. ABRAXANE [Suspect]
     Active Substance: PACLITAXEL
     Dosage: 100 MILLIGRAM/SQ. METER
     Route: 041
     Dates: start: 20190228, end: 20190228
  44. OLECLUMAB. [Concomitant]
     Active Substance: OLECLUMAB
     Dosage: 3000 MILLIGRAM
     Route: 042
     Dates: start: 20190124, end: 20190124
  45. MEDI4736 (DURVALUMAB) [Concomitant]
     Active Substance: DURVALUMAB
     Dosage: 1500 MILLIGRAM
     Route: 042
     Dates: start: 20190701, end: 20190701
  46. GEMCITABINE. [Concomitant]
     Active Substance: GEMCITABINE
     Dosage: 1000 MILLIGRAM/SQ. METER
     Route: 041
     Dates: start: 20190103, end: 20190103
  47. GEMCITABINE. [Concomitant]
     Active Substance: GEMCITABINE
     Dosage: 750 MILLIGRAM/SQ. METER
     Route: 041
     Dates: start: 20190408, end: 20190408
  48. GEMCITABINE. [Concomitant]
     Active Substance: GEMCITABINE
     Dosage: 750 MILLIGRAM/SQ. METER
     Route: 041
     Dates: start: 20190424, end: 20190424
  49. GEMCITABINE. [Concomitant]
     Active Substance: GEMCITABINE
     Dosage: 1305 MILLIGRAM/SQ. METER
     Route: 041
     Dates: start: 20190715, end: 20190715
  50. ZOLPIDEM [Concomitant]
     Active Substance: ZOLPIDEM TARTRATE
     Indication: INSOMNIA
     Dosage: 10 MILLIGRAM
     Route: 048
     Dates: start: 20181023
  51. NITROGLYCERIN. [Concomitant]
     Active Substance: NITROGLYCERIN
     Indication: ANGINA PECTORIS
     Dosage: 4 MILLIGRAM
     Route: 048
     Dates: start: 20120101
  52. PROVENTIL HFA [Concomitant]
     Active Substance: ALBUTEROL SULFATE
     Indication: CHRONIC OBSTRUCTIVE PULMONARY DISEASE
     Dosage: 108 MICROGRAM
     Route: 048
     Dates: start: 20160101
  53. DOCUSATE SODIUM. [Concomitant]
     Active Substance: DOCUSATE SODIUM
     Indication: CONSTIPATION
     Dosage: 100 MILLIGRAM
     Route: 048
     Dates: start: 20181214

REACTIONS (1)
  - Pancreatitis [Not Recovered/Not Resolved]

NARRATIVE: CASE EVENT DATE: 20190830
